FAERS Safety Report 10037573 (Version 2)
Quarter: 2014Q2

REPORT INFORMATION
  Report Type: Spontaneous
  Country: US (occurrence: None)
  Receive Date: 20140324
  Receipt Date: 20140425
  Transmission Date: 20141212
  Serious: Yes (Other)
  Sender: FDA-Public Use
  Company Number: UTC-046027

PATIENT
  Age: 76 Year
  Sex: Female
  Weight: 58.9 kg

DRUGS (1)
  1. REMODULIN [Suspect]
     Indication: PULMONARY ARTERIAL HYPERTENSION
     Dosage: (0.06 UG/KG, 1 IN 1 MIN)
     Route: 041
     Dates: start: 20111001

REACTIONS (4)
  - Paracentesis [None]
  - Device dislocation [None]
  - Fluid retention [None]
  - Drug dose omission [None]
